FAERS Safety Report 5486829-X (Version None)
Quarter: 2007Q4

REPORT INFORMATION
  Report Type: 
  Country: None (occurrence: None)
  Receive Date: 20071012
  Receipt Date: 20071012
  Transmission Date: 20080405
  Serious: Yes (Life-Threatening, Hospitalization)
  Sender: FDA-Public Use
  Company Number: None

PATIENT
  Sex: Male

DRUGS (6)
  1. KALETRA [Suspect]
     Indication: ACQUIRED IMMUNODEFICIENCY SYNDROME
     Dosage: 2 CAPSULES TWICE DAILY PO
     Route: 048
     Dates: start: 20010501
  2. COMBIVIR [Concomitant]
  3. PROTONIX [Concomitant]
  4. PEG-INTRON [Concomitant]
  5. VERAPAMIL [Concomitant]
  6. FACTOR VIII [Concomitant]

REACTIONS (1)
  - SUBDURAL HAEMATOMA [None]
